FAERS Safety Report 6701849-2 (Version None)
Quarter: 2010Q2

REPORT INFORMATION
  Report Type: 
  Country: None (occurrence: None)
  Receive Date: 20100429
  Receipt Date: 20100420
  Transmission Date: 20101027
  Serious: Yes (Hospitalization, Other)
  Sender: FDA-Public Use
  Company Number: US-ABBOTT-10P-163-0640617-00

PATIENT
  Sex: Female
  Weight: 50.848 kg

DRUGS (1)
  1. HUMIRA [Suspect]
     Indication: CROHN'S DISEASE
     Dates: start: 20091101, end: 20100407

REACTIONS (8)
  - DYSPHAGIA [None]
  - DYSPNOEA [None]
  - GINGIVAL RECESSION [None]
  - HYPERTENSION [None]
  - MOUTH HAEMORRHAGE [None]
  - OEDEMA MOUTH [None]
  - OROPHARYNGEAL PAIN [None]
  - STOMATITIS [None]
